FAERS Safety Report 8077058-4 (Version None)
Quarter: 2012Q1

REPORT INFORMATION
  Report Type: 
  Country: None (occurrence: None)
  Receive Date: 20120127
  Receipt Date: 20120119
  Transmission Date: 20120608
  Serious: Yes (Other)
  Sender: FDA-Public Use
  Company Number: PHHY2012ZA005850

PATIENT
  Age: 80 Year
  Sex: Female

DRUGS (3)
  1. FOSAMAX [Concomitant]
     Dosage: UNK UKN, UNK
  2. CALCIUM [Concomitant]
     Dosage: UNK UKN, UNK
  3. ZOLEDRONOC ACID [Suspect]
     Dosage: 5 MG, YEARLY
     Route: 042
     Dates: start: 20101201

REACTIONS (2)
  - FEMUR FRACTURE [None]
  - FALL [None]
